FAERS Safety Report 8491850-3 (Version None)
Quarter: 2012Q3

REPORT INFORMATION
  Report Type: 
  Country: None (occurrence: None)
  Receive Date: 20120706
  Receipt Date: 20110722
  Transmission Date: 20120928
  Serious: No
  Sender: FDA-Public Use
  Company Number: US-GLAXOSMITHKLINE-A0938017A

PATIENT
  Age: 48 Year
  Sex: Female

DRUGS (6)
  1. FLOVENT [Suspect]
     Indication: ASTHMA
     Dosage: 2PUFF TWICE PER DAY
     Route: 055
     Dates: start: 20070101
  2. FLONASE [Concomitant]
  3. ASTELIN [Concomitant]
  4. PROVENTIL [Concomitant]
  5. SINGULAIR [Concomitant]
  6. ALLEGRA [Concomitant]

REACTIONS (3)
  - DRUG INEFFECTIVE [None]
  - DYSPNOEA [None]
  - PRODUCT QUALITY ISSUE [None]
